FAERS Safety Report 8513676-4 (Version None)
Quarter: 2012Q3

REPORT INFORMATION
  Report Type: 
  Country: None (occurrence: None)
  Receive Date: 20120717
  Receipt Date: 20120706
  Transmission Date: 20120928
  Serious: Yes (Life-Threatening, Hospitalization, Disabling)
  Sender: FDA-Public Use
  Company Number: US-BRISTOL-MYERS SQUIBB COMPANY-16749954

PATIENT
  Age: 58 Year
  Sex: Male
  Weight: 58 kg

DRUGS (13)
  1. RAMUCIRUMAB [Suspect]
     Indication: NON-SMALL CELL LUNG CANCER
     Route: 042
     Dates: start: 20120604
  2. GEMCITABINE HYDROCHLORIDE [Suspect]
     Indication: NON-SMALL CELL LUNG CANCER
     Dosage: LAST DOSE ON:11JUN12 DOSE REDUSED TO:500MG/M2
     Route: 042
     Dates: start: 20120604
  3. PRILOSEC [Concomitant]
     Dates: start: 20120604, end: 20120621
  4. ONDANSETRON [Concomitant]
  5. NEUPOGEN [Concomitant]
     Dates: start: 20120618
  6. METHADONE HCL [Concomitant]
     Dates: start: 20120530, end: 20120621
  7. LEVAQUIN [Concomitant]
     Dates: start: 20120618
  8. ROXANOL [Concomitant]
     Dates: start: 20120618
  9. CARBOPLATIN [Suspect]
     Indication: NON-SMALL CELL LUNG CANCER
     Dosage: 1DF AUC =5, DOSE REDUSED TO AUC 3.
     Dates: start: 20120604
  10. ZOMETA [Concomitant]
     Dates: start: 20120611
  11. PROMETHAZINE [Concomitant]
  12. WARFARIN SODIUM [Concomitant]
     Dates: start: 20120522, end: 20120621
  13. PLATELETS [Concomitant]
     Dates: start: 20120618, end: 20120618

REACTIONS (3)
  - NEUTROPENIA [None]
  - RADIATION MUCOSITIS [None]
  - OROPHARYNGEAL PAIN [None]
